FAERS Safety Report 9916556 (Version 1)
Quarter: 2014Q1

REPORT INFORMATION
  Report Type: Spontaneous
  Country: US (occurrence: US)
  Receive Date: 20140221
  Receipt Date: 20140221
  Transmission Date: 20141002
  Serious: Yes (Hospitalization, Other)
  Sender: FDA-Public Use
  Company Number: US-TEVA-463845USA

PATIENT
  Age: 31 Year
  Sex: Female

DRUGS (2)
  1. DOXORUBICIN [Suspect]
     Indication: SPINDLE CELL SARCOMA
     Route: 065
  2. IFOSFAMIDE [Concomitant]
     Indication: SPINDLE CELL SARCOMA
     Route: 065

REACTIONS (5)
  - Congestive cardiomyopathy [Unknown]
  - Cardiac failure [Unknown]
  - Febrile neutropenia [Recovering/Resolving]
  - Sepsis [Recovering/Resolving]
  - Metastatic neoplasm [Unknown]
